FAERS Safety Report 23937027 (Version 1)
Quarter: 2024Q2

REPORT INFORMATION
  Report Type: Spontaneous
  Country: UA (occurrence: UA)
  Receive Date: 20240604
  Receipt Date: 20240604
  Transmission Date: 20240716
  Serious: Yes (Hospitalization)
  Sender: FDA-Public Use
  Company Number: UA-RDY-LIT/UKR/24/0008056

PATIENT
  Weight: 4.64 kg

DRUGS (8)
  1. OMEPRAZOLE [Suspect]
     Active Substance: DONEPEZIL HYDROCHLORIDE\OMEPRAZOLE\OMEPRAZOLE MAGNESIUM
     Indication: Gastrointestinal disorder prophylaxis
  2. METOCLOPRAMIDE [Concomitant]
     Active Substance: METOCLOPRAMIDE
     Indication: Vomiting
  3. ONDANSETRON [Concomitant]
     Active Substance: ONDANSETRON
     Indication: Vomiting
  4. DOMPERIDONE [Concomitant]
     Active Substance: DOMPERIDONE
     Indication: Vomiting
  5. carnitine/cobamamide/lysine-hydrochloride/pyridoxal-phosphate/thiamine [Concomitant]
     Indication: Prophylaxis
  6. THIOTRIAZOLINE [Concomitant]
     Indication: Prophylaxis
  7. PENTOXIFYLLINE [Concomitant]
     Active Substance: PENTOXIFYLLINE
     Indication: Prophylaxis
  8. ferrous-sulfate/serine [Concomitant]
     Indication: Anaemia

REACTIONS (1)
  - Drug ineffective [Unknown]
